FAERS Safety Report 18926492 (Version 2)
Quarter: 2021Q1

REPORT INFORMATION
  Report Type: Spontaneous
  Country: US (occurrence: US)
  Receive Date: 20210223
  Receipt Date: 20210318
  Transmission Date: 20210420
  Serious: Yes (Death, Hospitalization)
  Sender: FDA-Public Use
  Company Number: US-PFIZER INC-2021168092

PATIENT
  Age: 75 Year
  Sex: Male
  Weight: 90.7 kg

DRUGS (2)
  1. NORCO [Suspect]
     Active Substance: ACETAMINOPHEN\HYDROCODONE BITARTRATE
     Indication: PAIN MANAGEMENT
     Dosage: UNK
     Dates: start: 20160427
  2. PROPOFOL. [Suspect]
     Active Substance: PROPOFOL
     Indication: PAIN MANAGEMENT
     Dosage: UNK
     Dates: start: 20160427

REACTIONS (1)
  - Dyspnoea [Fatal]

NARRATIVE: CASE EVENT DATE: 20160427
